FAERS Safety Report 21541421 (Version 3)
Quarter: 2023Q1

REPORT INFORMATION
  Report Type: Spontaneous
  Country: BE (occurrence: BE)
  Receive Date: 20221102
  Receipt Date: 20230116
  Transmission Date: 20230417
  Serious: Yes (Other)
  Sender: FDA-Public Use
  Company Number: BE-PFIZER INC-PV202200090617

PATIENT
  Age: 63 Year
  Sex: Male
  Weight: 70 kg

DRUGS (15)
  1. XELJANZ [Suspect]
     Active Substance: TOFACITINIB CITRATE
     Indication: Rheumatoid arthritis
     Dosage: 5 MG, 2X/DAY
     Route: 048
     Dates: start: 201907, end: 20221025
  2. ASPIRIN [Concomitant]
     Active Substance: ASPIRIN
     Indication: Cardiovascular event prophylaxis
     Dosage: 80 MG, DAILY
  3. DULOXETINE [Concomitant]
     Active Substance: DULOXETINE
     Indication: Depression
     Dosage: 30 MG, DAILY
  4. TRAZODONE [Concomitant]
     Active Substance: TRAZODONE HYDROCHLORIDE
     Indication: Depression
     Dosage: 100 MG, DAILY (1 BEFORE GOING TO SLEEP)
  5. XANAX [Concomitant]
     Active Substance: ALPRAZOLAM
     Indication: Depression
     Dosage: 0.5 MG, DAILY (1/2 MORNING)
  6. LYRICA [Concomitant]
     Active Substance: PREGABALIN
     Indication: Polyneuropathy
     Dosage: 50 MG MORNING, 75 MG EVENING
  7. OMEPRAZOLE [Concomitant]
     Active Substance: OMEPRAZOLE
     Dosage: 40 MG
  8. BISOPROLOL [Concomitant]
     Active Substance: BISOPROLOL
     Dosage: UNK
  9. QUETIAPINE [Concomitant]
     Active Substance: QUETIAPINE
     Dosage: DECREASED UNTIL STOP
  10. QUININE [Concomitant]
     Active Substance: QUININE
     Dosage: UNK
  11. FOLIC ACID [Concomitant]
     Active Substance: FOLIC ACID
     Dosage: 5 MG
  12. VITAMIN B12 [Concomitant]
     Active Substance: CYANOCOBALAMIN
     Dosage: UNK
  13. CELEBREX [Concomitant]
     Active Substance: CELECOXIB
     Dosage: UNK
  14. MEDROL [Concomitant]
     Active Substance: METHYLPREDNISOLONE
     Dosage: 4 MG, ONLY 2 MORE DAYS
  15. RIVOTRIL [Concomitant]
     Active Substance: CLONAZEPAM
     Dosage: 0.5 MG

REACTIONS (27)
  - Polyneuropathy [Not Recovered/Not Resolved]
  - Arthritis bacterial [Unknown]
  - Diverticulitis [Unknown]
  - Peritonitis [Unknown]
  - Parkinson^s disease [Unknown]
  - Leukopenia [Unknown]
  - Granulomatous lymphadenitis [Unknown]
  - Paraesthesia [Unknown]
  - Tuberculin test positive [Unknown]
  - Back pain [Not Recovered/Not Resolved]
  - Hip arthroplasty [Unknown]
  - Osteoarthritis [Unknown]
  - Psychiatric decompensation [Unknown]
  - Dysaesthesia [Unknown]
  - General physical health deterioration [Unknown]
  - Lymphadenopathy [Not Recovered/Not Resolved]
  - Weight decreased [Unknown]
  - Mood swings [Unknown]
  - Tremor [Unknown]
  - Bradyphrenia [Unknown]
  - Myalgia [Unknown]
  - Fatigue [Unknown]
  - Headache [Unknown]
  - Gait disturbance [Unknown]
  - Muscle atrophy [Unknown]
  - Hypoaesthesia [Unknown]
  - Prostatitis [Unknown]

NARRATIVE: CASE EVENT DATE: 20210303
